FAERS Safety Report 7003220-5 (Version None)
Quarter: 2010Q3

REPORT INFORMATION
  Report Type: 
  Country: None (occurrence: None)
  Receive Date: 20100920
  Receipt Date: 20090721
  Transmission Date: 20110219
  Serious: Yes (Other)
  Sender: FDA-Public Use
  Company Number: US-ASTRAZENECA-2007UW12893

PATIENT
  Age: 9020 Day
  Sex: Male

DRUGS (14)
  1. SEROQUEL [Suspect]
     Indication: BIPOLAR DISORDER
     Dosage: 200 MG - 600 MG
     Route: 048
     Dates: start: 20020401, end: 20060701
  2. SEROQUEL [Suspect]
     Indication: AFFECTIVE DISORDER
     Dosage: 200 MG - 600 MG
     Route: 048
     Dates: start: 20020401, end: 20060701
  3. SEROQUEL [Suspect]
     Dosage: 25 - 1200 MG (FLUCTUATING)
     Route: 048
     Dates: start: 20041005, end: 20060503
  4. SEROQUEL [Suspect]
     Dosage: 25 - 1200 MG (FLUCTUATING)
     Route: 048
     Dates: start: 20041005, end: 20060503
  5. SEROQUEL [Suspect]
     Dosage: 25 MG TO 500MG
     Route: 048
     Dates: start: 20040930
  6. SEROQUEL [Suspect]
     Dosage: 25 MG TO 500MG
     Route: 048
     Dates: start: 20040930
  7. RISPERDAL [Concomitant]
     Dates: start: 20070101, end: 20070401
  8. LEXAPRO [Concomitant]
     Dosage: 10 - 20 MG
     Route: 048
     Dates: start: 20030408
  9. ZYPREXA [Concomitant]
     Route: 048
     Dates: start: 20030408
  10. XANAX [Concomitant]
     Route: 048
     Dates: start: 20030408
  11. DEPAKOTE [Concomitant]
     Route: 048
     Dates: start: 20030408
  12. THORAZINE [Concomitant]
     Indication: ANXIETY
     Route: 048
     Dates: start: 20030408
  13. TRAZODONE HCL [Concomitant]
     Indication: SLEEP DISORDER
     Route: 048
     Dates: start: 20050526
  14. GEODON [Concomitant]
     Route: 048
     Dates: start: 20060628

REACTIONS (6)
  - BLOOD GLUCOSE INCREASED [None]
  - DIABETES MELLITUS [None]
  - DIABETIC KETOACIDOSIS [None]
  - HYPERGLYCAEMIA [None]
  - HYPOGLYCAEMIA [None]
  - TYPE 1 DIABETES MELLITUS [None]
